FAERS Safety Report 7079623-X (Version None)
Quarter: 2010Q4

REPORT INFORMATION
  Report Type: 
  Country: None (occurrence: None)
  Receive Date: 20101102
  Receipt Date: 20101020
  Transmission Date: 20110411
  Serious: Yes (Hospitalization, Other)
  Sender: FDA-Public Use
  Company Number: PHEH2005US05719

PATIENT
  Sex: Male
  Weight: 78.458 kg

DRUGS (22)
  1. ZOMETA [Suspect]
     Indication: MULTIPLE MYELOMA
     Dosage: 4 MG MONTHLY
     Route: 042
     Dates: start: 20020101, end: 20030321
  2. ZOMETA [Suspect]
     Indication: METASTASES TO BONE
     Dosage: 4 MG, MONTHLY
     Route: 042
     Dates: end: 20050519
  3. ZOMETA [Suspect]
     Indication: HYPERCALCAEMIA
  4. VINCRISTINE + ADRIAMYCIN + DEXAMETHASONE [Concomitant]
     Indication: MULTIPLE MYELOMA
     Dates: end: 20020410
  5. MELPHALAN HYDROCHLORIDE [Concomitant]
     Indication: MULTIPLE MYELOMA
     Dates: start: 20020515
  6. WELLBUTRIN [Concomitant]
     Indication: DEPRESSION
     Dosage: 150 MG, QD
     Route: 048
  7. NEXIUM [Concomitant]
     Dosage: 40 MG, QHS
     Route: 048
  8. SYNTHROID [Concomitant]
     Indication: HYPOTHYROIDISM
     Dosage: 150 MCG, QD
     Route: 048
  9. LOPRESSOR [Concomitant]
     Indication: HYPERTENSION
     Dosage: 12.5 MG, QD
     Route: 048
  10. VALTREX [Concomitant]
     Dosage: 500 MG, TID
     Route: 048
  11. PERCOCET [Concomitant]
  12. NEURONTIN [Concomitant]
     Dosage: 300 MG, TID
     Route: 048
  13. ATIVAN [Concomitant]
  14. MARIJUANA [Concomitant]
  15. ZOLOFT [Concomitant]
  16. FLOMAX [Concomitant]
  17. LUNESTA [Concomitant]
  18. PROTONIX [Concomitant]
  19. DURAGESIC-100 [Concomitant]
  20. EFFEXOR [Concomitant]
  21. METHADONE [Concomitant]
  22. ZOLOFT [Concomitant]

REACTIONS (69)
  - ABSCESS JAW [None]
  - ALVEOLOPLASTY [None]
  - ANXIETY [None]
  - ATAXIA [None]
  - BLOOD ALKALINE PHOSPHATASE INCREASED [None]
  - BLOOD IMMUNOGLOBULIN G INCREASED [None]
  - BONE DEBRIDEMENT [None]
  - BONE DISORDER [None]
  - BONE LESION [None]
  - BONE SWELLING [None]
  - BONE TRIMMING [None]
  - CARDIAC DISORDER [None]
  - CARDIOMEGALY [None]
  - CARDIOMYOPATHY [None]
  - CATHETERISATION CARDIAC [None]
  - CELLULITIS [None]
  - CONVULSION [None]
  - CYST [None]
  - DECREASED INTEREST [None]
  - DECUBITUS ULCER [None]
  - DENTAL CARE [None]
  - DENTAL CARIES [None]
  - DENTAL OPERATION [None]
  - DENTURE WEARER [None]
  - DEPRESSION [None]
  - DEVICE BREAKAGE [None]
  - DRUG ABUSE [None]
  - DRUG SCREEN POSITIVE [None]
  - ERECTILE DYSFUNCTION [None]
  - EXCORIATION [None]
  - FLUSHING [None]
  - GENERAL PHYSICAL HEALTH DETERIORATION [None]
  - HAEMATOCRIT DECREASED [None]
  - HAEMOGLOBIN DECREASED [None]
  - HALLUCINATION [None]
  - HEADACHE [None]
  - IMPAIRED HEALING [None]
  - INCISIONAL DRAINAGE [None]
  - LEFT VENTRICULAR HYPERTROPHY [None]
  - LIBIDO DECREASED [None]
  - LUNG DISORDER [None]
  - MENTAL DISORDER [None]
  - MENTAL STATUS CHANGES [None]
  - MITRAL VALVE INCOMPETENCE [None]
  - MOUTH ULCERATION [None]
  - MUSCULOSKELETAL DISCOMFORT [None]
  - NASAL CONGESTION [None]
  - ORAL DISORDER [None]
  - OSTEOMYELITIS [None]
  - OSTEONECROSIS OF JAW [None]
  - PAIN IN JAW [None]
  - PENILE PAIN [None]
  - PENIS DISORDER [None]
  - PERIODONTITIS [None]
  - PEYRONIE'S DISEASE [None]
  - PLATELET COUNT DECREASED [None]
  - PRIMARY SEQUESTRUM [None]
  - PRODUCTIVE COUGH [None]
  - PROSTATITIS [None]
  - PYREXIA [None]
  - RED BLOOD CELL COUNT DECREASED [None]
  - RHINITIS [None]
  - TOOTH EXTRACTION [None]
  - UPPER-AIRWAY COUGH SYNDROME [None]
  - URINARY RETENTION [None]
  - VENTRICULAR TACHYCARDIA [None]
  - VESTIBULOPLASTY [None]
  - WHITE BLOOD CELL COUNT INCREASED [None]
  - WOUND DEHISCENCE [None]
